FAERS Safety Report 8250651-1 (Version None)
Quarter: 2012Q2

REPORT INFORMATION
  Report Type: 
  Country: None (occurrence: None)
  Receive Date: 20120402
  Receipt Date: 20120320
  Transmission Date: 20120825
  Serious: Yes (Other)
  Sender: FDA-Public Use
  Company Number: US-ROCHE-803131

PATIENT
  Sex: Male
  Weight: 79.45 kg

DRUGS (1)
  1. ACCUTANE [Suspect]
     Indication: ACNE
     Route: 065
     Dates: start: 19970703, end: 19971201

REACTIONS (4)
  - IRRITABLE BOWEL SYNDROME [None]
  - INFLAMMATORY BOWEL DISEASE [None]
  - COLITIS ULCERATIVE [None]
  - LIP DRY [None]
